FAERS Safety Report 5094797-8 (Version None)
Quarter: 2006Q3

REPORT INFORMATION
  Report Type: 
  Country: None (occurrence: None)
  Receive Date: 20060731
  Receipt Date: 20060408
  Transmission Date: 20061208
  Serious: No
  Sender: FDA-Public Use
  Company Number: 2006PV012011

PATIENT
  Age: 41 Year
  Sex: Male

DRUGS (10)
  1. BYETTA [Suspect]
     Indication: DIABETES MELLITUS NON-INSULIN-DEPENDENT
     Dosage: 5 MCG BID SC
     Route: 058
     Dates: start: 20060405
  2. ACETAMINOPHEN [Concomitant]
  3. ETODOLAC [Concomitant]
  4. CRESTOR [Concomitant]
  5. GLIMEPIRIDE [Concomitant]
  6. LORATADINE [Concomitant]
  7. RHINOCORT [Concomitant]
  8. ASPIRIN [Concomitant]
  9. LYRICA [Concomitant]
  10. LANTUS [Concomitant]

REACTIONS (2)
  - DRUG INEFFECTIVE FOR UNAPPROVED INDICATION [None]
  - SOMNOLENCE [None]
